FAERS Safety Report 14771291 (Version 1)
Quarter: 2018Q2

REPORT INFORMATION
  Report Type: Spontaneous
  Country: US (occurrence: US)
  Receive Date: 20180417
  Receipt Date: 20180417
  Transmission Date: 20180711
  Serious: Yes (Other)
  Sender: FDA-Public Use
  Company Number: US-SHIRE-US201813263

PATIENT
  Age: 70 Year
  Sex: Female

DRUGS (2)
  1. XIIDRA [Suspect]
     Active Substance: LIFITEGRAST
     Indication: DRY EYE
     Dosage: 1 GTT, OU 2X/DAY:BID
     Route: 047
     Dates: start: 201701
  2. XIIDRA [Suspect]
     Active Substance: LIFITEGRAST
     Dosage: UNK
     Dates: start: 201709

REACTIONS (4)
  - Instillation site foreign body sensation [Unknown]
  - Cataract [Unknown]
  - Drug dose omission [Unknown]
  - Instillation site pain [Unknown]
